FAERS Safety Report 8025457-9 (Version None)
Quarter: 2012Q1

REPORT INFORMATION
  Report Type: 
  Country: None (occurrence: None)
  Receive Date: 20120105
  Receipt Date: 20111228
  Transmission Date: 20120608
  Serious: Yes (Hospitalization)
  Sender: FDA-Public Use
  Company Number: US-ABBOTT-11P-163-0883469-02

PATIENT
  Sex: Male
  Weight: 78.996 kg

DRUGS (14)
  1. FOLIC ACID [Concomitant]
     Indication: ARTHRITIS
  2. HUMIRA [Suspect]
     Indication: PSORIASIS
     Route: 058
     Dates: start: 20110102, end: 20111109
  3. METHOTREXATE [Concomitant]
     Indication: PSORIASIS
     Dates: start: 20080101
  4. METHOTREXATE [Concomitant]
     Indication: ARTHRITIS
  5. VALSARTAN [Concomitant]
     Indication: BLOOD PRESSURE
  6. ALTACE [Concomitant]
     Indication: BLOOD PRESSURE
  7. OMEPRAZOLE [Concomitant]
     Indication: GASTROOESOPHAGEAL REFLUX DISEASE
     Dates: start: 20070506
  8. HYDROCHLOROTHIAZIDE [Concomitant]
     Indication: DIURETIC THERAPY
  9. CELECOXIB [Concomitant]
     Indication: ARTHRITIS
  10. COUMADIN [Concomitant]
     Indication: CARDIAC DISORDER
  11. TRILIPIX [Concomitant]
     Indication: BLOOD CHOLESTEROL
     Dates: start: 20070506
  12. FOLIC ACID [Concomitant]
     Indication: VITAMIN SUPPLEMENTATION
  13. TYLENOL W/ CODEINE NO. 3 [Concomitant]
     Indication: ARTHRALGIA
     Dosage: 300/30MG
  14. LIPITOR [Concomitant]
     Indication: BLOOD CHOLESTEROL
     Dates: start: 20110101

REACTIONS (5)
  - DYSPHAGIA [None]
  - COUGH [None]
  - DYSPNOEA [None]
  - CHEST DISCOMFORT [None]
  - CORONARY ARTERY DISEASE [None]
